FAERS Safety Report 10299671 (Version 1)
Quarter: 2014Q3

REPORT INFORMATION
  Report Type: Spontaneous
  Country: IT (occurrence: IT)
  Receive Date: 20140711
  Receipt Date: 20140711
  Transmission Date: 20150326
  Serious: Yes (Hospitalization, Other)
  Sender: FDA-Public Use
  Company Number: PHHY2014IT084619

PATIENT

DRUGS (1)
  1. RIVASTIGMINE [Suspect]
     Active Substance: RIVASTIGMINE

REACTIONS (15)
  - Salivary hypersecretion [Unknown]
  - Cholinergic syndrome [Recovering/Resolving]
  - Hyperhidrosis [Unknown]
  - Diarrhoea [Unknown]
  - Mental disorder [Unknown]
  - Somnolence [Unknown]
  - Abdominal distension [Unknown]
  - Confusional state [Unknown]
  - Tachypnoea [Unknown]
  - Mental impairment [Unknown]
  - Accidental exposure to product by child [Unknown]
  - Respiratory failure [Unknown]
  - Toxicity to various agents [Unknown]
  - Sinus tachycardia [Unknown]
  - Psychomotor hyperactivity [Unknown]
